FAERS Safety Report 23245223 (Version 1)
Quarter: 2023Q4

REPORT INFORMATION
  Report Type: Spontaneous
  Country: US (occurrence: US)
  Receive Date: 20231130
  Receipt Date: 20231130
  Transmission Date: 20240110
  Serious: No
  Sender: FDA-Public Use
  Company Number: US-ALVOGEN-2023092113

PATIENT
  Age: 62 Year
  Sex: Male

DRUGS (2)
  1. TERIPARATIDE [Suspect]
     Active Substance: TERIPARATIDE
     Indication: Supplementation therapy
     Dosage: STRENGTH: 250 MCG?EXPIRATION DATE: UNKNOWN
     Dates: start: 20230228
  2. TERIPARATIDE [Suspect]
     Active Substance: TERIPARATIDE
     Indication: Supplementation therapy
     Dosage: STRENGTH: 250 MCG?EXPIRATION DATE: UU-AUG-2024?PRODUCT SERIAL: 837954808833
     Dates: end: 20230810

REACTIONS (3)
  - Device malfunction [Unknown]
  - Device operational issue [Unknown]
  - Product quality issue [Unknown]

NARRATIVE: CASE EVENT DATE: 20230810
